FAERS Safety Report 10762961 (Version 1)
Quarter: 2015Q1

REPORT INFORMATION
  Report Type: Spontaneous
  Country: IT (occurrence: IT)
  Receive Date: 20150204
  Receipt Date: 20150204
  Transmission Date: 20150721
  Serious: Yes (Other)
  Sender: FDA-Public Use
  Company Number: IT-ACTAVIS-2015-01148

PATIENT
  Age: 65 Year
  Sex: Female

DRUGS (1)
  1. DOXORUBICIN (UNKNOWN) [Suspect]
     Active Substance: DOXORUBICIN
     Indication: HEPATIC CANCER RECURRENT
     Dosage: 60 MG/M2, CYCLICAL
     Route: 065

REACTIONS (1)
  - Squamous cell carcinoma [Not Recovered/Not Resolved]
